FAERS Safety Report 15395840 (Version 1)
Quarter: 2018Q3

REPORT INFORMATION
  Report Type: Spontaneous
  Country: US (occurrence: US)
  Receive Date: 20180912
  Receipt Date: 20180912
  Transmission Date: 20181010
  Serious: Yes (Life-Threatening, Hospitalization, Disabling, Other)
  Sender: FDA-Public Use
  Company Number: None

PATIENT
  Age: 40 Year
  Sex: Female
  Weight: 119.25 kg

DRUGS (17)
  1. GEODON [Concomitant]
     Active Substance: ZIPRASIDONE HYDROCHLORIDE\ZIPRASIDONE MESYLATE
  2. LINISIPRIL [Concomitant]
  3. ABILIFY [Suspect]
     Active Substance: ARIPIPRAZOLE
     Indication: BIPOLAR DISORDER
     Dosage: ?          QUANTITY:2 CAPSULE(S);?
     Route: 048
     Dates: start: 20010601, end: 20080601
  4. JANUVIA [Suspect]
     Active Substance: SITAGLIPTIN PHOSPHATE
  5. VITAMIN D [Concomitant]
     Active Substance: CHOLECALCIFEROL
  6. VITAMIN B12 [Concomitant]
     Active Substance: CYANOCOBALAMIN
  7. ATORVASTATIN [Suspect]
     Active Substance: ATORVASTATIN
  8. TYLENOL [Concomitant]
     Active Substance: ACETAMINOPHEN
  9. ASPIRIN. [Concomitant]
     Active Substance: ASPIRIN
  10. ALEVE [Concomitant]
     Active Substance: NAPROXEN SODIUM
  11. LAMOTRIGINE. [Concomitant]
     Active Substance: LAMOTRIGINE
  12. GLUCHOMETER [Concomitant]
  13. ADVIL [Concomitant]
     Active Substance: IBUPROFEN
  14. SYNTHROID [Concomitant]
     Active Substance: LEVOTHYROXINE SODIUM
  15. LORAZEPAM. [Suspect]
     Active Substance: LORAZEPAM
  16. TYLENOL [Concomitant]
     Active Substance: ACETAMINOPHEN
  17. FISH OIL [Concomitant]
     Active Substance: FISH OIL

REACTIONS (7)
  - Obsessive-compulsive personality disorder [None]
  - Quality of life decreased [None]
  - Libido increased [None]
  - Compulsive shopping [None]
  - Compulsive sexual behaviour [None]
  - Increased appetite [None]
  - Weight increased [None]

NARRATIVE: CASE EVENT DATE: 20010601
